FAERS Safety Report 14721347 (Version 1)
Quarter: 2018Q1

REPORT INFORMATION
  Report Type: Spontaneous
  Country: US (occurrence: US)
  Receive Date: 20180331
  Receipt Date: 20180331
  Transmission Date: 20180509
  Serious: Yes (Disabling, Other)
  Sender: FDA-Public Use
  Company Number: None

PATIENT
  Age: 36 Year
  Sex: Female
  Weight: 97.52 kg

DRUGS (1)
  1. MIRENA [Suspect]
     Active Substance: LEVONORGESTREL

REACTIONS (6)
  - Nausea [None]
  - Computerised tomogram abnormal [None]
  - Vomiting [None]
  - Pain [None]
  - Vertigo [None]
  - Scar [None]

NARRATIVE: CASE EVENT DATE: 20070820
